FAERS Safety Report 24349251 (Version 1)
Quarter: 2024Q3

REPORT INFORMATION
  Report Type: Report from Study
  Country: US (occurrence: US)
  Receive Date: 20240923
  Receipt Date: 20240923
  Transmission Date: 20241017
  Serious: Yes (Hospitalization, Other)
  Sender: TAKEDA
  Company Number: US-TAKEDA-US201938743

PATIENT
  Age: 76 Year
  Sex: Male
  Weight: 85 kg

DRUGS (34)
  1. VELAGLUCERASE ALFA [Suspect]
     Active Substance: VELAGLUCERASE ALFA
     Indication: Gaucher^s disease
     Dosage: 35 INTERNATIONAL UNIT/KILOGRAM, 1X/2WKS (EVERY TWO WEEKS)
     Route: 065
     Dates: start: 20080606
  2. LEVITRA [Concomitant]
     Active Substance: VARDENAFIL HYDROCHLORIDE
     Indication: Erectile dysfunction
     Dosage: UNK UNK, QD
     Route: 048
     Dates: start: 20130108, end: 201311
  3. BUPROPION [Concomitant]
     Active Substance: BUPROPION
     Indication: Depression
     Dosage: 300 MILLIGRAM, QD
     Route: 048
     Dates: start: 20101208, end: 20190611
  4. ALLOPURINOL [Concomitant]
     Active Substance: ALLOPURINOL
     Indication: Gout
     Dosage: 100 MILLIGRAM, QD
     Route: 048
     Dates: start: 20040715
  5. SIMVASTATIN [Concomitant]
     Active Substance: SIMVASTATIN
     Indication: Hypercholesterolaemia
     Dosage: 20 MILLIGRAM, QD
     Route: 048
     Dates: start: 20120810, end: 20190221
  6. POTASSIUM CHLORIDE [Concomitant]
     Active Substance: POTASSIUM CHLORIDE
     Indication: Arrhythmia
     Dosage: UNK UNK, QD
     Route: 048
     Dates: start: 20110613, end: 20130731
  7. TRAZODONE [Concomitant]
     Active Substance: TRAZODONE HYDROCHLORIDE
     Indication: Insomnia
     Dosage: 100 MILLIGRAM, QD
     Route: 048
     Dates: start: 20121213
  8. LISINOPRIL [Concomitant]
     Active Substance: LISINOPRIL
     Indication: Hypertension
     Dosage: UNK UNK, QD
     Route: 048
     Dates: start: 20120831, end: 20130731
  9. ASPIRIN [Concomitant]
     Active Substance: ASPIRIN
     Dosage: UNK UNK, QD
     Route: 048
     Dates: start: 20120821, end: 20180113
  10. ATENOLOL [Concomitant]
     Active Substance: ATENOLOL
     Indication: Hypertension
     Dosage: 50 MILLIGRAM, BID
     Route: 048
     Dates: start: 20100503
  11. OMEGA-EFA [Concomitant]
     Dosage: UNK UNK, QD
     Route: 048
     Dates: start: 20120514
  12. NAPROXEN SODIUM [Concomitant]
     Active Substance: NAPROXEN\NAPROXEN SODIUM
     Indication: Arthralgia
     Dosage: UNK UNK, BID
     Route: 048
     Dates: start: 20120121, end: 20130813
  13. DOCUSATE SODIUM [Concomitant]
     Active Substance: DOCUSATE SODIUM
     Indication: Constipation
     Dosage: UNK
     Route: 048
     Dates: start: 20101213
  14. NIACIN [Concomitant]
     Active Substance: NIACIN
     Dosage: UNK UNK, QD
     Route: 048
     Dates: start: 20091106, end: 20161109
  15. LOSARTAN [Concomitant]
     Active Substance: LOSARTAN\LOSARTAN POTASSIUM
     Indication: Hypertension
     Dosage: 25 MILLIGRAM, QD
     Route: 048
     Dates: start: 20130731, end: 20130814
  16. LOSARTAN [Concomitant]
     Active Substance: LOSARTAN\LOSARTAN POTASSIUM
     Dosage: 50 MILLIGRAM, BID
     Route: 048
     Dates: start: 20130814
  17. AMLODIPINE [Concomitant]
     Active Substance: AMLODIPINE BESYLATE
     Indication: Hypertension
     Dosage: UNK UNK, BID
     Route: 048
     Dates: start: 20130819
  18. DESMOPRESSIN [Concomitant]
     Active Substance: DESMOPRESSIN
     Indication: Premedication
     Dosage: UNK UNK, SINGLE
     Route: 042
     Dates: start: 20140528, end: 20140528
  19. MUPIROCIN [Concomitant]
     Active Substance: MUPIROCIN
     Indication: Skin ulcer
     Dosage: UNK
     Route: 061
     Dates: start: 20131210, end: 20190424
  20. SILDENAFIL [Concomitant]
     Active Substance: SILDENAFIL
     Indication: Erectile dysfunction
     Dosage: UNK
     Route: 048
     Dates: start: 20131120, end: 20190611
  21. AMOXICILLIN [Concomitant]
     Active Substance: AMOXICILLIN
     Indication: Antibiotic prophylaxis
     Dosage: UNK
     Route: 048
     Dates: start: 201411, end: 201412
  22. AMOXICILLIN [Concomitant]
     Active Substance: AMOXICILLIN
     Dosage: UNK
     Route: 048
     Dates: start: 20150811, end: 20150830
  23. PIMECROLIMUS [Concomitant]
     Active Substance: PIMECROLIMUS
     Indication: Seborrhoeic dermatitis
     Dosage: UNK UNK, BID
     Route: 061
     Dates: start: 20161004, end: 20180112
  24. SINEMET [Concomitant]
     Active Substance: CARBIDOPA\LEVODOPA
     Indication: Tremor
     Dosage: UNK UNK, TID
     Route: 048
     Dates: start: 20190117
  25. TAMSULOSIN [Concomitant]
     Active Substance: TAMSULOSIN
     Indication: Urinary retention
     Dosage: 0.4 MILLIGRAM
     Route: 048
     Dates: start: 20190311
  26. ROSUVASTATIN [Concomitant]
     Active Substance: ROSUVASTATIN\ROSUVASTATIN CALCIUM
     Indication: Type 2 diabetes mellitus
     Dosage: 20 MILLIGRAM, QD
     Route: 048
     Dates: start: 20190221
  27. NYSTATIN [Concomitant]
     Active Substance: NYSTATIN
     Indication: Prophylaxis
     Dosage: UNK UNK, BID
     Route: 061
     Dates: start: 20200425, end: 20200428
  28. HYDROCORTISONE [Concomitant]
     Active Substance: HYDROCORTISONE\HYDROCORTISONE ACETATE
     Indication: Dermatitis
     Dosage: UNK UNK, QID
     Route: 061
     Dates: start: 20200417
  29. ALENDRONATE [Concomitant]
     Active Substance: ALENDRONATE SODIUM
     Indication: Osteopenia
     Dosage: 70 MILLIGRAM, 1/WEEK
     Route: 048
     Dates: start: 20190703, end: 20200408
  30. METFORMIN [Concomitant]
     Active Substance: METFORMIN HYDROCHLORIDE
     Indication: Type 2 diabetes mellitus
     Dosage: 500 MILLIGRAM, BID
     Route: 048
     Dates: start: 20200115, end: 20200402
  31. FENOFIBRATE [Concomitant]
     Active Substance: FENOFIBRATE
     Indication: Type 2 diabetes mellitus
     Dosage: 54 MILLIGRAM, QD
     Route: 048
     Dates: start: 20200317, end: 20200319
  32. MAGNESIUM HYDROXIDE [Concomitant]
     Active Substance: MAGNESIUM HYDROXIDE
     Indication: Constipation
     Dosage: 15 MILLILITER, QD
     Route: 048
     Dates: start: 20200311
  33. CITALOPRAM [Concomitant]
     Active Substance: CITALOPRAM\CITALOPRAM HYDROBROMIDE
     Indication: Anxiety
     Dosage: 10 MILLIGRAM, QD
     Route: 048
     Dates: start: 20191121
  34. TYLENOL [Concomitant]
     Active Substance: ACETAMINOPHEN
     Indication: Pain in extremity
     Dosage: 500 MILLIGRAM, QD
     Route: 048
     Dates: start: 20190703

REACTIONS (1)
  - Sepsis [Recovered/Resolved]

NARRATIVE: CASE EVENT DATE: 20191006
